FAERS Safety Report 7299887-7 (Version None)
Quarter: 2011Q1

REPORT INFORMATION
  Report Type: 
  Country: None (occurrence: None)
  Receive Date: 20110217
  Receipt Date: 20110208
  Transmission Date: 20110831
  Serious: Yes (Other)
  Sender: FDA-Public Use
  Company Number: US-ASTRAZENECA-2011SE07723

PATIENT
  Age: 83 Year
  Sex: Female

DRUGS (10)
  1. DARVOCET-N 100 [Concomitant]
     Dosage: QID PRN
     Route: 048
  2. CALCIUM, VITAMIN D [Concomitant]
     Dosage: 600 MGS-400IU TWO TIMES A DAY
     Route: 048
  3. PLAVIX [Concomitant]
     Route: 048
  4. FLEXERIL [Concomitant]
     Route: 048
  5. CRESTOR [Suspect]
     Route: 048
  6. NORVASC [Concomitant]
     Route: 048
  7. CIPROFLOXACIN OPTHALMIC [Concomitant]
     Dosage: TWO GTT EVERY SIX HOURS
     Route: 047
  8. ARTHROTEE [Concomitant]
     Dosage: 75MG-200 MCGS ONE TABLET TWO TIMES A DAY
     Route: 048
  9. HYZAAR [Concomitant]
     Dosage: 25 MGS-100 MGS  ONE TABLET DAILY
     Route: 048
  10. FOSAMAX [Concomitant]
     Dosage: 70 MGS IN AM AS DIRECTED EVERY WEEK
     Route: 048

REACTIONS (4)
  - ARTHRITIS [None]
  - CEREBROVASCULAR ACCIDENT [None]
  - ABASIA [None]
  - HEMIPLEGIA [None]
